FAERS Safety Report 21433465 (Version 3)
Quarter: 2022Q4

REPORT INFORMATION
  Report Type: Report from Study
  Country: US (occurrence: US)
  Receive Date: 20221010
  Receipt Date: 20221107
  Transmission Date: 20230113
  Serious: No
  Sender: FDA-Public Use
  Company Number: US-ABBVIE-4137738

PATIENT
  Age: 71 Year
  Sex: Female
  Weight: 45.359 kg

DRUGS (7)
  1. DUOPA [Suspect]
     Active Substance: CARBIDOPA\LEVODOPA
     Indication: Parkinson^s disease
     Route: 050
     Dates: start: 20210524
  2. DUOPA [Suspect]
     Active Substance: CARBIDOPA\LEVODOPA
     Indication: Product used for unknown indication
  3. MIDODRINE [Concomitant]
     Active Substance: MIDODRINE
     Indication: Hypertension
  4. FLUDROCORTISONE [Concomitant]
     Active Substance: FLUDROCORTISONE
     Indication: Hypertension
  5. ZOLOFT [Concomitant]
     Active Substance: SERTRALINE HYDROCHLORIDE
     Indication: Depression
  6. Moderna [Concomitant]
     Indication: COVID-19 immunisation
     Dosage: MODERNA ONE IN ONCE
     Route: 030
     Dates: start: 20210225, end: 20210225
  7. Moderna [Concomitant]
     Indication: COVID-19 immunisation
     Dosage: MODERNA ONE IN ONCE
     Route: 030
     Dates: start: 20210325, end: 20210325

REACTIONS (9)
  - Stoma site discharge [Recovering/Resolving]
  - Stoma site reaction [Recovering/Resolving]
  - Rhinorrhoea [Not Recovered/Not Resolved]
  - Device issue [Not Recovered/Not Resolved]
  - Seasonal allergy [Not Recovered/Not Resolved]
  - Infection [Unknown]
  - Fall [Recovered/Resolved]
  - Lacrimation increased [Not Recovered/Not Resolved]
  - Eyelid margin crusting [Not Recovered/Not Resolved]

NARRATIVE: CASE EVENT DATE: 20210501
